FAERS Safety Report 23549059 (Version 1)
Quarter: 2024Q1

REPORT INFORMATION
  Report Type: Spontaneous
  Country: CN (occurrence: CN)
  Receive Date: 20240221
  Receipt Date: 20240221
  Transmission Date: 20240410
  Serious: Yes (Hospitalization)
  Sender: FDA-Public Use
  Company Number: CN-PFIZER INC-PV202400022910

PATIENT
  Age: 5 Year
  Sex: Male
  Weight: 18 kg

DRUGS (3)
  1. CYTARABINE [Suspect]
     Active Substance: CYTARABINE
     Indication: Acute lymphocytic leukaemia
     Dosage: 1.45 G, 2X/DAY
     Route: 042
     Dates: start: 20240209, end: 20240210
  2. PEGASPARGASE [Suspect]
     Active Substance: PEGASPARGASE
     Indication: Acute lymphocytic leukaemia
     Dosage: 1460 IU, 1X/DAY
     Route: 030
     Dates: start: 20240210, end: 20240210
  3. VINCRISTINE SULFATE [Suspect]
     Active Substance: VINCRISTINE SULFATE
     Indication: Acute lymphocytic leukaemia
     Dosage: 1 MG, 1X/DAY
     Route: 041
     Dates: start: 20240208, end: 20240208

REACTIONS (3)
  - Myelosuppression [Recovering/Resolving]
  - Transaminases increased [Recovering/Resolving]
  - Abdominal pain [Recovering/Resolving]

NARRATIVE: CASE EVENT DATE: 20240210
